FAERS Safety Report 4482535-9 (Version None)
Quarter: 2004Q4

REPORT INFORMATION
  Report Type: 
  Country: None (occurrence: None)
  Receive Date: 20041022
  Receipt Date: 20041014
  Transmission Date: 20050328
  Serious: Yes (Death, Hospitalization)
  Sender: FDA-Public Use
  Company Number: AU-BRISTOL-MYERS SQUIBB COMPANY-12739017

PATIENT
  Age: 79 Year
  Sex: Female

DRUGS (11)
  1. METHOTREXATE [Suspect]
     Indication: RHEUMATOID ARTHRITIS
     Dosage: 10-20 MG/WEEK
  2. LEFLUNOMIDE [Suspect]
     Indication: RHEUMATOID ARTHRITIS
  3. PREDNISOLONE [Concomitant]
  4. FOLIC ACID [Concomitant]
  5. OMEPRAZOLE [Concomitant]
  6. ESTRADIOL [Concomitant]
  7. CAPTOPRIL [Concomitant]
  8. CELECOXIB [Concomitant]
  9. FUROSEMIDE [Concomitant]
  10. DOTHIEPIN HYDROCHLORIDE [Concomitant]
  11. CALCITRIOL [Concomitant]

REACTIONS (3)
  - DEATH [None]
  - NEUTROPENIA [None]
  - PANCYTOPENIA [None]
